FAERS Safety Report 18296723 (Version 3)
Quarter: 2021Q3

REPORT INFORMATION
  Report Type: Spontaneous
  Country: DE (occurrence: DE)
  Receive Date: 20200922
  Receipt Date: 20210709
  Transmission Date: 20211014
  Serious: Yes (Hospitalization, Other)
  Sender: FDA-Public Use
  Company Number: DE-PFIZER INC-2020362521

PATIENT
  Age: 64 Year
  Sex: Female

DRUGS (14)
  1. VIANI [Concomitant]
     Active Substance: FLUTICASONE PROPIONATE\SALMETEROL XINAFOATE
     Dosage: UNK UNK, 2X/DAY 500/50 ?G, 1?0?1?0, INHALATOR
     Route: 055
  2. SITAGLIPTIN METFORMIN [Concomitant]
     Active Substance: METFORMIN HYDROCHLORIDE\SITAGLIPTIN PHOSPHATE
     Dosage: UNK, 2X/DAY 500/50 MG, 1?0?1?0, TABLETS
  3. NALOXONE HYDROCHLORIDE/TILIDINE HYDROCHLORIDE [Suspect]
     Active Substance: NALOXONE HYDROCHLORIDE\TILIDINE HYDROCHLORIDE
     Dosage: UNK
  4. INSULIN GLARGINE [Concomitant]
     Active Substance: INSULIN GLARGINE
     Dosage: 24 IU, 1X/DAY 0?1?0?0 INJECTION / INFUSION SOLUTION
  5. FOLIC ACID. [Concomitant]
     Active Substance: FOLIC ACID
     Dosage: 5 MG, WEEKLY ON WEDNESDAYS, TABLETS
  6. METAMIZOLE [Concomitant]
     Active Substance: METAMIZOLE
     Dosage: 500 MG, AS NEEDED, TABLETS
  7. ACTRAPID [Concomitant]
     Active Substance: INSULIN HUMAN
     Dosage: ACCORDING TO BLOOD SUGAR? INJECTION/INFUSION SOLUTION
  8. ASPIRIN. [Concomitant]
     Active Substance: ASPIRIN
     Dosage: 100 MG, 1X/DAY 0?1?0?0, TABLETS
  9. ALLOPURINOL. [Concomitant]
     Active Substance: ALLOPURINOL
     Dosage: 150 MG 1X/DAY: 0.5?0?0?0, 300 MG TABLETS
  10. RIOPAN [MAGALDRATE] [Concomitant]
     Active Substance: MAGALDRATE
     Dosage: UNK, 1X/DAY 0?0?1?0, GEL
  11. METHOTREXATE SODIUM. [Suspect]
     Active Substance: METHOTREXATE SODIUM
     Dosage: 10 MG, WEEKLY ON TUESDAYS, TABLETS
  12. RAMIPRIL. [Concomitant]
     Active Substance: RAMIPRIL
     Dosage: 2.5 MG, 1X/DAY 1?0?0?0, TABLETS
  13. ATORVASTATIN [Concomitant]
     Active Substance: ATORVASTATIN
     Dosage: 60 MG, 1X/DAY 0?0?1?0, TABLETS
  14. SPIRIVA [Concomitant]
     Active Substance: TIOTROPIUM BROMIDE MONOHYDRATE
     Dosage: 18 UG, 1X/DAY INHALATOR
     Route: 055

REACTIONS (9)
  - Circulatory collapse [Unknown]
  - Abdominal pain upper [Unknown]
  - Contusion [Recovered/Resolved]
  - Dizziness [Unknown]
  - Hepatic failure [Recovered/Resolved]
  - Medication error [Unknown]
  - White blood cell count decreased [Recovered/Resolved]
  - Anaemia macrocytic [Recovered/Resolved]
  - Liver function test increased [Recovered/Resolved]
